FAERS Safety Report 4272648-9 (Version None)
Quarter: 2004Q1

REPORT INFORMATION
  Report Type: 
  Country: None (occurrence: None)
  Receive Date: 20040115
  Receipt Date: 20040115
  Transmission Date: 20041129
  Serious: Yes (Life-Threatening)
  Sender: FDA-Public Use
  Company Number: None

PATIENT
  Age: 47 Year
  Sex: Female

DRUGS (1)
  1. LABETALOL 100MG/20ML BAXTER [Suspect]
     Indication: HYPERTENSION
     Dosage: 10 MG X 1 INTRAVENOUS
     Route: 042
     Dates: start: 20040107, end: 20040107

REACTIONS (15)
  - BLOOD PRESSURE DECREASED [None]
  - DEPRESSED LEVEL OF CONSCIOUSNESS [None]
  - EAR HAEMORRHAGE [None]
  - ENCEPHALOPATHY [None]
  - EPISTAXIS [None]
  - FEAR [None]
  - HEADACHE [None]
  - HYPERHIDROSIS [None]
  - HYPERTENSIVE CRISIS [None]
  - HYPOACUSIS [None]
  - MENTAL STATUS CHANGES [None]
  - MOTOR DYSFUNCTION [None]
  - TINNITUS [None]
  - TYMPANIC MEMBRANE DISORDER [None]
  - VISION BLURRED [None]
